FAERS Safety Report 8769660 (Version 3)
Quarter: 2014Q4

REPORT INFORMATION
  Report Type: Spontaneous
  Country: US (occurrence: US)
  Receive Date: 20120905
  Receipt Date: 20141230
  Transmission Date: 20150529
  Serious: Yes (Hospitalization, Disabling)
  Sender: FDA-Public Use
  Company Number: US-009507513-1209USA000764

PATIENT
  Sex: Male
  Weight: 103.4 kg

DRUGS (2)
  1. PROPECIA [Suspect]
     Active Substance: FINASTERIDE
     Indication: ANDROGENETIC ALOPECIA
     Dosage: 1 MG, UNK
     Route: 048
     Dates: start: 19990721, end: 200407
  2. PROPECIA [Suspect]
     Active Substance: FINASTERIDE
     Indication: ALOPECIA

REACTIONS (25)
  - Hypogonadism [Not Recovered/Not Resolved]
  - Back pain [Not Recovered/Not Resolved]
  - Anal fissure excision [Unknown]
  - Arthralgia [Unknown]
  - Erectile dysfunction [Not Recovered/Not Resolved]
  - Myalgia [Unknown]
  - Loss of libido [Not Recovered/Not Resolved]
  - Fatigue [Unknown]
  - Blood testosterone decreased [Unknown]
  - Testicular atrophy [Unknown]
  - Hydrocele [Unknown]
  - Metabolic syndrome [Unknown]
  - Eczema [Unknown]
  - Weight increased [Unknown]
  - Glucose tolerance impaired [Unknown]
  - Muscle atrophy [Not Recovered/Not Resolved]
  - Back pain [Unknown]
  - Sexual dysfunction [Unknown]
  - Genital atrophy [Not Recovered/Not Resolved]
  - Endocrine test [Unknown]
  - Cognitive disorder [Unknown]
  - Irritability [Unknown]
  - Insomnia [Not Recovered/Not Resolved]
  - Tonsillectomy [Unknown]
  - Gynaecomastia [Not Recovered/Not Resolved]

NARRATIVE: CASE EVENT DATE: 2000
